FAERS Safety Report 5509099-2 (Version None)
Quarter: 2007Q4

REPORT INFORMATION
  Report Type: 
  Country: None (occurrence: None)
  Receive Date: 20071026
  Receipt Date: 20070711
  Transmission Date: 20080405
  Serious: Yes (Hospitalization)
  Sender: FDA-Public Use
  Company Number: CLOF-10600

PATIENT
  Age: 37 Year
  Sex: Female
  Weight: 61.3 kg

DRUGS (8)
  1. CLOFARABINE. MFR: GENZYME [Suspect]
     Indication: NON-HODGKIN'S LYMPHOMA
     Dosage: 8 MG DAILY IV
     Route: 042
     Dates: start: 20061011, end: 20061013
  2. ACYCLOVIR [Concomitant]
  3. FLUCONAZOLE [Concomitant]
  4. ATOVAQUONE [Concomitant]
  5. LEVOFLOXACIN [Concomitant]
  6. GABAPENTIN [Concomitant]
  7. OXYCONTIN [Concomitant]
  8. PREVACID [Concomitant]

REACTIONS (1)
  - FEBRILE NEUTROPENIA [None]
